FAERS Safety Report 10341567 (Version 1)
Quarter: 2014Q3

REPORT INFORMATION
  Report Type: Spontaneous
  Country: US (occurrence: None)
  Receive Date: 20140723
  Receipt Date: 20140723
  Transmission Date: 20150326
  Serious: Yes (Hospitalization, Other)
  Sender: FDA-Public Use
  Company Number: 2010S1000538

PATIENT
  Age: 45 Year
  Sex: Male

DRUGS (6)
  1. GLUCOPHAGE [Concomitant]
     Active Substance: METFORMIN HYDROCHLORIDE
  2. PHOSPHO-SODA [Suspect]
     Active Substance: SODIUM PHOSPHATE, DIBASIC\SODIUM PHOSPHATE, MONOBASIC
     Indication: COLONOSCOPY
     Route: 048
     Dates: start: 20050516, end: 20050517
  3. LOPID [Concomitant]
     Active Substance: GEMFIBROZIL
  4. GLYBURIDE (GLIBENCLAMIDE) [Concomitant]
     Active Substance: GLYBURIDE
  5. LIPITOR [Concomitant]
     Active Substance: ATORVASTATIN CALCIUM
  6. VIAGRA [Concomitant]
     Active Substance: SILDENAFIL CITRATE

REACTIONS (33)
  - Hyperphosphataemia [None]
  - Fluid overload [None]
  - Pyrexia [None]
  - Intercapillary glomerulosclerosis [None]
  - Cough [None]
  - Haemodialysis [None]
  - Pharyngitis streptococcal [None]
  - Renal failure acute [None]
  - Nausea [None]
  - Malaise [None]
  - Flank pain [None]
  - Hernia [None]
  - Cardiac failure congestive [None]
  - Anaemia of chronic disease [None]
  - Tachypnoea [None]
  - Tooth infection [None]
  - Pneumonia [None]
  - Hypocalcaemia [None]
  - Computerised tomogram abnormal [None]
  - Pleural effusion [None]
  - Back pain [None]
  - Pain [None]
  - Metabolic acidosis [None]
  - Mitral valve incompetence [None]
  - Dizziness [None]
  - Renal failure chronic [None]
  - Renal arteriosclerosis [None]
  - Decreased appetite [None]
  - Haematuria [None]
  - Hyperparathyroidism secondary [None]
  - Blood chloride increased [None]
  - Iron deficiency [None]
  - Aphagia [None]

NARRATIVE: CASE EVENT DATE: 20060409
